FAERS Safety Report 18602705 (Version 1)
Quarter: 2020Q4

REPORT INFORMATION
  Report Type: Spontaneous
  Country: US (occurrence: US)
  Receive Date: 20201210
  Receipt Date: 20201210
  Transmission Date: 20210114
  Serious: No
  Sender: FDA-Public Use
  Company Number: US-PERRIGO-20US013805

PATIENT
  Age: 75 Year
  Sex: Female
  Weight: 79.37 kg

DRUGS (2)
  1. ALBUTEROL SULFATE. [Suspect]
     Active Substance: ALBUTEROL SULFATE
     Dosage: CHUNKS OF MEDICATION, SINGLE
     Route: 055
     Dates: start: 20200921, end: 20200921
  2. ALBUTEROL SULFATE. [Suspect]
     Active Substance: ALBUTEROL SULFATE
     Indication: DYSPNOEA
     Dosage: 180 MCG, 2 TO 3 TIMES DAILY, PRN
     Route: 055
     Dates: start: 202009, end: 20200920

REACTIONS (3)
  - Cough [Recovered/Resolved]
  - Incorrect dose administered [Recovered/Resolved]
  - Device delivery system issue [Unknown]

NARRATIVE: CASE EVENT DATE: 20200921
